FAERS Safety Report 6084149-6 (Version None)
Quarter: 2009Q1

REPORT INFORMATION
  Report Type: 
  Country: None (occurrence: None)
  Receive Date: 20090217
  Receipt Date: 20090203
  Transmission Date: 20090719
  Serious: Yes (Other)
  Sender: FDA-Public Use
  Company Number: PHHY2009CA03516

PATIENT
  Sex: Male

DRUGS (3)
  1. VISUDYNE [Suspect]
     Indication: MACULAR DEGENERATION
     Dates: start: 20050101
  2. AVASTIN [Concomitant]
  3. LUCENTIS [Concomitant]

REACTIONS (2)
  - DRUG EFFECT DECREASED [None]
  - SCOTOMA [None]
